FAERS Safety Report 9511280 (Version 1)
Quarter: 2013Q3

REPORT INFORMATION
  Report Type: Spontaneous
  Country: US (occurrence: None)
  Receive Date: 20130909
  Receipt Date: 20130909
  Transmission Date: 20140515
  Serious: Yes (Other)
  Sender: FDA-Public Use
  Company Number: None

PATIENT
  Age: 21 Year
  Sex: Male
  Weight: 79.38 kg

DRUGS (1)
  1. MEFLOQUINE 250MG [Suspect]
     Dosage: ONE TABLET PER WEEK
     Dates: start: 20130527, end: 20130802

REACTIONS (9)
  - Insomnia [None]
  - Anxiety [None]
  - Vertigo [None]
  - Heart rate increased [None]
  - Heart rate irregular [None]
  - Nausea [None]
  - Tremor [None]
  - Hypoaesthesia [None]
  - Ear discomfort [None]
